FAERS Safety Report 17895277 (Version 6)
Quarter: 2020Q3

REPORT INFORMATION
  Report Type: Spontaneous
  Country: US (occurrence: US)
  Receive Date: 20200615
  Receipt Date: 20200713
  Transmission Date: 20201103
  Serious: No
  Sender: FDA-Public Use
  Company Number: US-AMGEN-USASP2020091174

PATIENT
  Sex: Female

DRUGS (3)
  1. NEULASTA [Suspect]
     Active Substance: PEGFILGRASTIM
     Indication: NEUTROPENIA
     Dosage: 6000 MICROGRAM
     Route: 065
     Dates: start: 20200604
  2. NEULASTA [Suspect]
     Active Substance: PEGFILGRASTIM
     Dosage: 6000 MICROGRAM
     Route: 065
     Dates: start: 20200604
  3. NEULASTA [Suspect]
     Active Substance: PEGFILGRASTIM
     Dosage: 6000 UNK
     Route: 065
     Dates: start: 20200604

REACTIONS (1)
  - Device use error [Unknown]

NARRATIVE: CASE EVENT DATE: 20200604
